FAERS Safety Report 8266677-8 (Version None)
Quarter: 2012Q2

REPORT INFORMATION
  Report Type: 
  Country: None (occurrence: None)
  Receive Date: 20120408
  Receipt Date: 20120329
  Transmission Date: 20120825
  Serious: Yes (Hospitalization)
  Sender: FDA-Public Use
  Company Number: JP-AMGEN-JPNCT2012013728

PATIENT
  Age: 69 Year
  Sex: Male
  Weight: 44 kg

DRUGS (16)
  1. CORTICOSTEROIDS [Concomitant]
     Indication: PROPHYLAXIS
     Dosage: UNK
     Route: 065
  2. LOCOID [Concomitant]
     Dosage: UNK
     Route: 062
  3. PANITUMUMAB [Suspect]
     Dosage: 4.8 MG/KG, Q2WK
     Route: 041
     Dates: start: 20110630, end: 20110630
  4. PANITUMUMAB [Suspect]
     Dosage: 6 MG/KG, Q2WK
     Route: 041
     Dates: start: 20110728, end: 20110728
  5. MINOCYCLINE HYDROCHLORIDE [Concomitant]
     Dosage: UNK
     Route: 048
  6. PREDNISOLONE [Concomitant]
     Dosage: UNK
     Route: 048
  7. PANITUMUMAB [Suspect]
     Dosage: 4.8 MG/KG, Q2WK
     Route: 041
     Dates: start: 20110421, end: 20110602
  8. PANITUMUMAB [Suspect]
     Dosage: 6 MG/KG, Q2WK
     Route: 041
     Dates: start: 20110901, end: 20110901
  9. MYSER [Concomitant]
     Dosage: UNK
     Route: 062
  10. PANITUMUMAB [Suspect]
     Indication: COLORECTAL CANCER
     Dosage: 6 MG/KG, Q2WK
     Route: 041
     Dates: start: 20101104, end: 20101216
  11. ANTIHISTAMINES [Concomitant]
     Indication: PROPHYLAXIS
     Dosage: UNK
     Route: 065
  12. PANITUMUMAB [Suspect]
     Dosage: 6 MG/KG, Q2WK
     Route: 041
     Dates: start: 20110929, end: 20120202
  13. ALLEGRA [Concomitant]
     Dosage: UNK
     Route: 048
  14. HIRUDOID LOTION [Concomitant]
     Route: 062
  15. PANITUMUMAB [Suspect]
     Dosage: 4.8 MG/KG, Q2WK
     Route: 041
     Dates: start: 20110324, end: 20110324
  16. HIRUDOID [Concomitant]
     Dosage: UNK
     Route: 062

REACTIONS (4)
  - POST PROCEDURAL HAEMORRHAGE [None]
  - MALAISE [None]
  - HYPOMAGNESAEMIA [None]
  - DERMATITIS ACNEIFORM [None]
